FAERS Safety Report 8453177-5 (Version None)
Quarter: 2012Q2

REPORT INFORMATION
  Report Type: 
  Country: None (occurrence: None)
  Receive Date: 20120620
  Receipt Date: 20120510
  Transmission Date: 20120825
  Serious: No
  Sender: FDA-Public Use
  Company Number: US-VERTEX PHARMACEUTICALS INC.-AE-2012-006855

PATIENT
  Sex: Male
  Weight: 90.8 kg

DRUGS (5)
  1. RIBAVIRIN [Concomitant]
     Indication: HEPATITIS C
     Dates: start: 20120422, end: 20120502
  2. NADOLOL [Concomitant]
     Indication: HYPERTENSION
     Route: 048
  3. NEXIUM [Concomitant]
     Indication: GASTROOESOPHAGEAL REFLUX DISEASE
     Route: 048
  4. PEGASYS [Concomitant]
     Indication: HEPATITIS C
     Route: 058
     Dates: start: 20120422, end: 20120502
  5. INCIVEK [Suspect]
     Indication: HEPATITIS C
     Route: 048
     Dates: start: 20120422, end: 20120502

REACTIONS (6)
  - FATIGUE [None]
  - LIVER FUNCTION TEST ABNORMAL [None]
  - DECREASED APPETITE [None]
  - ASTHENIA [None]
  - DYSPNOEA [None]
  - DYSGEUSIA [None]
